FAERS Safety Report 8400972 (Version 3)
Quarter: 2013Q3

REPORT INFORMATION
  Report Type: Spontaneous
  Country: DK (occurrence: None)
  Receive Date: 20120130
  Receipt Date: 20130716
  Transmission Date: 20140515
  Serious: Yes (Hospitalization)
  Sender: FDA-Public Use
  Company Number: 216518

PATIENT
  Age: 62 Year
  Sex: Male
  Weight: 108 kg

DRUGS (7)
  1. INNOHEP [Suspect]
     Indication: THROMBOSIS PROPHYLAXIS
     Dosage: (18000 IU), SUBCUTANEOUS
     Route: 058
     Dates: start: 20111025
  2. FILGRASTIM (FILGRASTIM) [Suspect]
     Indication: DIFFUSE LARGE B-CELL LYMPHOMA
     Dosage: (6 MG), SUBCUTANEOUS
     Route: 058
     Dates: start: 20111017
  3. PREDNISONE [Suspect]
     Indication: DIFFUSE LARGE B-CELL LYMPHOMA
     Route: 048
     Dates: start: 20111014
  4. RITUXIMAB [Suspect]
     Indication: DIFFUSE LARGE B-CELL LYMPHOMA
     Route: 042
     Dates: start: 20111014
  5. CYCLOPHOSPHAMIDE [Suspect]
     Indication: DIFFUSE LARGE B-CELL LYMPHOMA
     Route: 042
  6. DOXORUBICIN HYDROCHLORIDE [Suspect]
     Indication: DIFFUSE LARGE B-CELL LYMPHOMA
     Route: 042
  7. VINCRISTINE SULFATE [Suspect]
     Indication: DIFFUSE LARGE B-CELL LYMPHOMA
     Dates: start: 20111014

REACTIONS (7)
  - Axillary vein thrombosis [None]
  - Subclavian vein thrombosis [None]
  - Medical device complication [None]
  - Lung infection [None]
  - Skin ulcer [None]
  - Infection [None]
  - Off label use [None]
